FAERS Safety Report 8260426-5 (Version None)
Quarter: 2012Q2

REPORT INFORMATION
  Report Type: 
  Country: None (occurrence: None)
  Receive Date: 20120404
  Receipt Date: 20120329
  Transmission Date: 20120825
  Serious: Yes (Other)
  Sender: FDA-Public Use
  Company Number: PHHY2012US027294

PATIENT
  Age: 62 Year
  Sex: Female

DRUGS (1)
  1. TACROLIMUS [Suspect]
     Indication: IMMUNOSUPPRESSION

REACTIONS (8)
  - LOCKED-IN SYNDROME [None]
  - OSMOTIC DEMYELINATION SYNDROME [None]
  - PARAPLEGIA [None]
  - EXTENSOR PLANTAR RESPONSE [None]
  - APRAXIA [None]
  - UNRESPONSIVE TO STIMULI [None]
  - APHASIA [None]
  - DYSARTHRIA [None]
